FAERS Safety Report 4970071-2 (Version None)
Quarter: 2006Q2

REPORT INFORMATION
  Report Type: 
  Country: None (occurrence: None)
  Receive Date: 20060406
  Receipt Date: 20060327
  Transmission Date: 20061013
  Serious: Yes (Death)
  Sender: FDA-Public Use
  Company Number: 200611879BWH

PATIENT
  Age: 73 Year
  Sex: Male

DRUGS (1)
  1. TRASYLOL [Suspect]
     Indication: MITRAL VALVE REPLACEMENT
     Dates: start: 20060101

REACTIONS (2)
  - POST PROCEDURAL HAEMORRHAGE [None]
  - POSTOPERATIVE RENAL FAILURE [None]
